FAERS Safety Report 15246641 (Version 1)
Quarter: 2018Q3

REPORT INFORMATION
  Report Type: Spontaneous
  Country: US (occurrence: US)
  Receive Date: 20180806
  Receipt Date: 20180806
  Transmission Date: 20181010
  Serious: No
  Sender: FDA-Public Use
  Company Number: PHEH2018US029480

PATIENT
  Sex: Male

DRUGS (3)
  1. GOCOVRI [Suspect]
     Active Substance: AMANTADINE
     Indication: PRODUCT USED FOR UNKNOWN INDICATION
     Dosage: 137 MG, BID
     Route: 065
  2. GOCOVRI [Suspect]
     Active Substance: AMANTADINE
     Dosage: 137 MG, QD (1 CAPSULE)
     Route: 065
  3. AMANTADINE. [Suspect]
     Active Substance: AMANTADINE HYDROCHLORIDE
     Indication: PRODUCT USED FOR UNKNOWN INDICATION
     Dosage: 100 MG, BID
     Route: 065

REACTIONS (3)
  - Gait disturbance [Recovering/Resolving]
  - Inappropriate schedule of drug administration [Unknown]
  - Balance disorder [Recovering/Resolving]
